FAERS Safety Report 7938368-1 (Version None)
Quarter: 2011Q4

REPORT INFORMATION
  Report Type: 
  Country: None (occurrence: None)
  Receive Date: 20111123
  Receipt Date: 20111103
  Transmission Date: 20120403
  Serious: Yes (Life-Threatening)
  Sender: FDA-Public Use
  Company Number: US-CELGENEUS-163-21660-11113153

PATIENT
  Sex: Female

DRUGS (1)
  1. ABRAXANE [Suspect]
     Route: 065
     Dates: end: 20111102

REACTIONS (1)
  - HYPERSENSITIVITY [None]
